FAERS Safety Report 7272598-X (Version None)
Quarter: 2011Q1

REPORT INFORMATION
  Report Type: 
  Country: None (occurrence: None)
  Receive Date: 20110128
  Receipt Date: 20110113
  Transmission Date: 20110831
  Serious: Yes (Death)
  Sender: FDA-Public Use
  Company Number: 1000017910

PATIENT
  Age: 76 Year
  Sex: Female

DRUGS (4)
  1. THYMANAX (AGOMELATINE) (TABLETS) [Suspect]
     Indication: MAJOR DEPRESSION
     Dosage: 25 MG (25 MG, 1 IN 1 D), ORAL
     Route: 048
     Dates: start: 20101111, end: 20101124
  2. ESCITALOPRAM [Suspect]
     Indication: MAJOR DEPRESSION
     Dosage: 5 MG (5 MG, 1 IN 1 D), ORAL
     Route: 048
     Dates: start: 20101111, end: 20101124
  3. LANSOPRAZOLE [Concomitant]
  4. KARVEZIDE (IRBESARTAN, HYDROCHLOROTHIAZIDE) (TABLETS) (IRBESARTAN, HYD [Concomitant]

REACTIONS (18)
  - APATHY [None]
  - AZOTAEMIA [None]
  - CEREBRAL SMALL VESSEL ISCHAEMIC DISEASE [None]
  - FATIGUE [None]
  - CONSTIPATION [None]
  - HYPERNATRAEMIA [None]
  - PSYCHOMOTOR RETARDATION [None]
  - HYPOTENSION [None]
  - ELECTROCARDIOGRAM QT PROLONGED [None]
  - COMA [None]
  - VOMITING [None]
  - HYPEROSMOLAR STATE [None]
  - CAROTID ARTERIOSCLEROSIS [None]
  - HYPERCREATINAEMIA [None]
  - TONIC CLONIC MOVEMENTS [None]
  - ARTERIOSCLEROSIS [None]
  - HYPERGLYCAEMIA [None]
  - CEREBRAL ATROPHY [None]
